FAERS Safety Report 5374610-1 (Version None)
Quarter: 2007Q2

REPORT INFORMATION
  Report Type: 
  Country: None (occurrence: None)
  Receive Date: 20070627
  Receipt Date: 20070627
  Transmission Date: 20071010
  Serious: Yes (Hospitalization)
  Sender: FDA-Public Use
  Company Number: None

PATIENT
  Age: 55 Year
  Sex: Male
  Weight: 132.9039 kg

DRUGS (2)
  1. CARBOPLATIN [Suspect]
  2. TAXOL [Suspect]

REACTIONS (2)
  - DEAFNESS TRANSITORY [None]
  - ORAL INTAKE REDUCED [None]
